FAERS Safety Report 4838265-4 (Version None)
Quarter: 2005Q4

REPORT INFORMATION
  Report Type: 
  Country: None (occurrence: None)
  Receive Date: 20051128
  Receipt Date: 20051123
  Transmission Date: 20060501
  Serious: Yes (Hospitalization)
  Sender: FDA-Public Use
  Company Number: TW-MERCK-0511TWN00021

PATIENT
  Age: 44 Month
  Sex: Male
  Weight: 13 kg

DRUGS (1)
  1. SINGULAIR [Suspect]
     Indication: ASTHMA
     Route: 048
     Dates: start: 20051114, end: 20051114

REACTIONS (3)
  - ARTHRITIS [None]
  - DIFFICULTY IN WALKING [None]
  - URTICARIA [None]
